FAERS Safety Report 18944740 (Version 2)
Quarter: 2021Q2

REPORT INFORMATION
  Report Type: Spontaneous
  Country: US (occurrence: US)
  Receive Date: 20210226
  Receipt Date: 20210605
  Transmission Date: 20210717
  Serious: Yes (Hospitalization, Other)
  Sender: FDA-Public Use
  Company Number: US-DRREDDYS-USA/USA/21/0132171

PATIENT
  Age: 66 Year
  Sex: Male

DRUGS (8)
  1. FLUOXETINE [Concomitant]
     Active Substance: FLUOXETINE HYDROCHLORIDE
     Indication: MAJOR DEPRESSION
  2. FLUOXETINE [Concomitant]
     Active Substance: FLUOXETINE HYDROCHLORIDE
     Indication: MAJOR DEPRESSION
  3. LORAZEPAM INJECTION USP, 2 MG/ML AND 4 MG/ML [Suspect]
     Active Substance: LORAZEPAM
     Indication: MAJOR DEPRESSION
     Dosage: EVERY EVENING
  4. ZONISAMIDE. [Concomitant]
     Active Substance: ZONISAMIDE
     Indication: MAJOR DEPRESSION
     Dosage: EVERY NIGHTLY
  5. LEVETIRACETAM. [Concomitant]
     Active Substance: LEVETIRACETAM
     Indication: MAJOR DEPRESSION
  6. LORAZEPAM INJECTION USP, 2 MG/ML AND 4 MG/ML [Suspect]
     Active Substance: LORAZEPAM
     Indication: MAJOR DEPRESSION
     Dosage: EVERY MORNING
  7. LEVETIRACETAM. [Concomitant]
     Active Substance: LEVETIRACETAM
     Indication: MAJOR DEPRESSION
     Dosage: EVERY NIGHTLY (EXTENDED?RELEASE)
     Route: 048
  8. ZONISAMIDE. [Concomitant]
     Active Substance: ZONISAMIDE
     Indication: MAJOR DEPRESSION

REACTIONS (2)
  - Cognitive disorder [Unknown]
  - Condition aggravated [Unknown]
